FAERS Safety Report 8558593-9 (Version None)
Quarter: 2012Q3

REPORT INFORMATION
  Report Type: 
  Country: None (occurrence: None)
  Receive Date: 20120801
  Receipt Date: 20120713
  Transmission Date: 20120928
  Serious: Yes (Other)
  Sender: FDA-Public Use
  Company Number: CA-009507513-1208CAN000074

PATIENT

DRUGS (2)
  1. SAPHRIS [Suspect]
     Dosage: 10 MG, QD
     Route: 060
  2. SAPHRIS [Suspect]
     Dosage: 5 MG, QD
     Route: 060
     Dates: start: 20120617

REACTIONS (3)
  - CHEST PAIN [None]
  - UNDERDOSE [None]
  - INAPPROPRIATE SCHEDULE OF DRUG ADMINISTRATION [None]
